FAERS Safety Report 12684934 (Version 1)
Quarter: 2016Q3

REPORT INFORMATION
  Report Type: Spontaneous
  Country: JP (occurrence: JP)
  Receive Date: 20160825
  Receipt Date: 20160825
  Transmission Date: 20161109
  Serious: Yes (Other)
  Sender: FDA-Public Use
  Company Number: JP-JNJFOC-20160818022

PATIENT
  Age: 43 Year
  Sex: Female

DRUGS (9)
  1. ASACOL [Concomitant]
     Active Substance: MESALAMINE
     Route: 065
     Dates: start: 2015
  2. PREDNISOLONE. [Concomitant]
     Active Substance: PREDNISOLONE
     Route: 065
     Dates: start: 20151113
  3. ASACOL [Concomitant]
     Active Substance: MESALAMINE
     Route: 065
     Dates: end: 201506
  4. SALAZOSULFAPYRIDINE [Concomitant]
     Active Substance: SULFASALAZINE
     Route: 065
     Dates: start: 2015
  5. PREDNISOLONE. [Concomitant]
     Active Substance: PREDNISOLONE
     Route: 065
     Dates: start: 2011, end: 201308
  6. ASACOL [Concomitant]
     Active Substance: MESALAMINE
     Route: 065
  7. REMICADE [Suspect]
     Active Substance: INFLIXIMAB
     Indication: COLITIS ULCERATIVE
     Route: 042
     Dates: start: 201205, end: 201309
  8. PREDNISOLONE. [Concomitant]
     Active Substance: PREDNISOLONE
     Route: 065
  9. TACROLIMUS. [Suspect]
     Active Substance: TACROLIMUS
     Indication: COLITIS ULCERATIVE
     Route: 065
     Dates: start: 20151117, end: 201511

REACTIONS (4)
  - Lupus-like syndrome [Recovering/Resolving]
  - Metastases to ovary [Unknown]
  - Pancreatic carcinoma [Unknown]
  - Metastases to peritoneum [Unknown]

NARRATIVE: CASE EVENT DATE: 201309
